FAERS Safety Report 9332787 (Version 1)
Quarter: 2013Q2

REPORT INFORMATION
  Report Type: Spontaneous
  Country: AU (occurrence: None)
  Receive Date: 20130603
  Receipt Date: 20130603
  Transmission Date: 20140414
  Serious: Yes (Hospitalization)
  Sender: FDA-Public Use
  Company Number: B0895677A

PATIENT
  Age: 20 Month
  Sex: Male
  Weight: 24.2 kg

DRUGS (3)
  1. LAMOTRIGINE [Suspect]
     Indication: PRODUCT USED FOR UNKNOWN INDICATION
     Route: 048
  2. PAROXETINE HYDROCHLORIDE [Suspect]
     Indication: PRODUCT USED FOR UNKNOWN INDICATION
     Route: 048
  3. BUPROPION HYDROCHLORIDE [Suspect]
     Indication: PRODUCT USED FOR UNKNOWN INDICATION
     Route: 048

REACTIONS (12)
  - Accidental exposure to product by child [None]
  - Delirium [None]
  - Flushing [None]
  - Agitation [None]
  - Altered state of consciousness [None]
  - Anxiety [None]
  - Feeling jittery [None]
  - Mydriasis [None]
  - Dyskinesia [None]
  - Hypertonia [None]
  - Hyperreflexia [None]
  - Anticonvulsant drug level increased [None]
